FAERS Safety Report 20429974 (Version 1)
Quarter: 2022Q1

REPORT INFORMATION
  Report Type: Report from Study
  Country: FR (occurrence: FR)
  Receive Date: 20220204
  Receipt Date: 20220204
  Transmission Date: 20220424
  Serious: Yes (Hospitalization)
  Sender: FDA-Public Use
  Company Number: FR-SERVIER-S19005048

PATIENT

DRUGS (36)
  1. ONCASPAR [Suspect]
     Active Substance: PEGASPARGASE
     Indication: Acute lymphocytic leukaemia
     Dosage: 3525 IU
     Route: 042
     Dates: start: 20180813
  2. ONCASPAR [Suspect]
     Active Substance: PEGASPARGASE
     Dosage: 3525 IU, ON D15, D43
     Route: 042
     Dates: start: 20181008, end: 20181105
  3. ONCASPAR [Suspect]
     Active Substance: PEGASPARGASE
     Dosage: 3525 IU, ON D4
     Route: 042
     Dates: start: 20190207
  4. VINCRISTINE SULFATE [Suspect]
     Active Substance: VINCRISTINE SULFATE
     Indication: Acute lymphocytic leukaemia
     Dosage: 2 MG, ON D15-D22, D43-D50
     Route: 042
     Dates: start: 20181008, end: 20181103
  5. VINCRISTINE SULFATE [Suspect]
     Active Substance: VINCRISTINE SULFATE
     Dosage: 2 MG ON D1, D8, D15, D22
     Route: 042
     Dates: start: 20190204
  6. CYCLOPHOSPHAMIDE [Concomitant]
     Active Substance: CYCLOPHOSPHAMIDE
     Indication: Acute lymphocytic leukaemia
     Dosage: 1400 MG ON D1-D29
     Route: 042
     Dates: start: 20180924, end: 20181021
  7. CYTARABINE [Suspect]
     Active Substance: CYTARABINE
     Indication: Acute lymphocytic leukaemia
     Dosage: 110 MG IV, ON D3-D6, D10-D13, D31-D34 AND D38-D41)
     Route: 042
     Dates: start: 20180926, end: 20181103
  8. CYTARABINE [Suspect]
     Active Substance: CYTARABINE
     Dosage: 30 MG ON D3, D13
     Route: 037
     Dates: start: 20180926, end: 20181024
  9. CYTARABINE [Suspect]
     Active Substance: CYTARABINE
     Dosage: 30 MG ON D4
     Route: 037
     Dates: start: 20190204
  10. TN UNSPECIFIED [Concomitant]
     Indication: Acute lymphocytic leukaemia
     Dosage: 80 MG ON D1-D14, D29-D42
     Route: 048
     Dates: start: 20180924, end: 20181104
  11. HYDROCORTISONE [Suspect]
     Active Substance: HYDROCORTISONE
     Indication: Acute lymphocytic leukaemia
     Dosage: 15 MG  ON D3, D13
     Route: 037
     Dates: start: 20180926, end: 20181024
  12. HYDROCORTISONE [Suspect]
     Active Substance: HYDROCORTISONE
     Dosage: 15 MG ON D4
     Route: 037
     Dates: start: 20190204
  13. METHOTREXATE [Suspect]
     Active Substance: METHOTREXATE
     Indication: Acute lymphocytic leukaemia
     Dosage: 15 MG ON D3, D13
     Route: 037
     Dates: start: 20180926, end: 20181024
  14. METHOTREXATE [Suspect]
     Active Substance: METHOTREXATE
     Dosage: 15 MG  ON D4
     Route: 037
     Dates: start: 20190204
  15. DOXORUBICIN HYDROCHLORIDE [Suspect]
     Active Substance: DOXORUBICIN HYDROCHLORIDE
     Indication: Acute lymphocytic leukaemia
     Dosage: 43 MG  ON D1, D8, D15, D22
     Route: 042
     Dates: start: 20190204
  16. DEXAMETHASONE PHOSPHATE [Suspect]
     Active Substance: DEXAMETHASONE PHOSPHATE
     Indication: Acute lymphocytic leukaemia
     Dosage: 98 MG, ON D1-D7, D15-D21
     Route: 042
     Dates: start: 20190204
  17. TN UNSPECIFIED [Concomitant]
     Indication: Nausea
     Dosage: 16 MG, QD
     Route: 048
     Dates: start: 20180802
  18. TN UNSPECIFIED [Concomitant]
     Indication: Vomiting
  19. TN UNSPECIFIED [Concomitant]
     Indication: Nausea
     Dosage: 150 MG, PRN
     Route: 042
     Dates: start: 20180802
  20. TN UNSPECIFIED [Concomitant]
     Indication: Vomiting
  21. TN UNSPECIFIED [Concomitant]
     Indication: Prophylaxis
     Dosage: 50 MG, QD
     Route: 048
     Dates: start: 20180802
  22. TN UNSPECIFIED [Concomitant]
     Indication: Prophylaxis
     Dosage: 1000 MG, QD
     Route: 048
     Dates: start: 20180802
  23. STEROGYL [Concomitant]
     Active Substance: ERGOCALCIFEROL
     Indication: Prophylaxis
     Dosage: 5 MG, QD
     Route: 048
     Dates: start: 20180802
  24. TN UNSPECIFIED [Concomitant]
     Indication: Contraception
     Dosage: 5 MG, QD
     Route: 048
     Dates: start: 20180802
  25. TN UNSPECIFIED [Concomitant]
     Indication: Constipation
     Dosage: 10 MG, QD
     Route: 048
     Dates: start: 20180802
  26. TN UNSPECIFIED [Concomitant]
     Dosage: 20 MG, QD
     Route: 048
     Dates: start: 20180814
  27. TN UNSPECIFIED [Concomitant]
     Indication: Pain
     Dosage: 54 MG, QD
     Route: 042
     Dates: start: 20180805
  28. TN UNSPECIFIED [Concomitant]
     Indication: Pain
     Dosage: 2 MG, PRN
     Route: 048
     Dates: start: 20180809
  29. TN UNSPECIFIED [Concomitant]
     Indication: Pyrexia
  30. TN UNSPECIFIED [Concomitant]
     Indication: Prophylaxis
     Dosage: 800 MG, QD
     Route: 048
     Dates: start: 20180817
  31. TN UNSPECIFIED [Concomitant]
     Indication: Pain
     Dosage: 28 GTT, QD
     Route: 048
     Dates: start: 20180821
  32. TN UNSPECIFIED [Concomitant]
     Indication: Depression
     Dosage: 20 MG, QD
     Route: 048
     Dates: start: 20180827
  33. TN UNSPECIFIED [Concomitant]
     Indication: Coagulopathy
     Dosage: 10 MG, QD
     Route: 042
     Dates: start: 20180829
  34. TN UNSPECIFIED [Concomitant]
     Indication: Vomiting
     Dosage: 15 MG, QD
     Route: 048
     Dates: start: 20180830
  35. TN UNSPECIFIED [Concomitant]
     Indication: Nausea
  36. TN UNSPECIFIED [Concomitant]
     Indication: Infection
     Dosage: 1 G, QD
     Route: 048
     Dates: start: 20181116

REACTIONS (2)
  - Hepatotoxicity [Unknown]
  - Mucosal inflammation [Recovered/Resolved]

NARRATIVE: CASE EVENT DATE: 20190225
